FAERS Safety Report 11483629 (Version 1)
Quarter: 2015Q3

REPORT INFORMATION
  Report Type: Spontaneous
  Country: US (occurrence: US)
  Receive Date: 20150903
  Receipt Date: 20150903
  Transmission Date: 20151125
  Serious: No
  Sender: FDA-Public Use
  Company Number: US-ELI_LILLY_AND_COMPANY-US201204008075

PATIENT
  Age: 31 Year
  Sex: Female
  Weight: 98.87 kg

DRUGS (5)
  1. CYMBALTA [Suspect]
     Active Substance: DULOXETINE HYDROCHLORIDE
     Dosage: 60 MG, QD
     Route: 048
     Dates: end: 20120409
  2. REBIF [Concomitant]
     Active Substance: INTERFERON BETA-1A
  3. TYLENOL                                 /SCH/ [Concomitant]
     Dosage: UNK, PRN
  4. ALEVE [Concomitant]
     Active Substance: NAPROXEN SODIUM
  5. CYMBALTA [Suspect]
     Active Substance: DULOXETINE HYDROCHLORIDE
     Dosage: 30 MG, QD
     Route: 048
     Dates: start: 20120321

REACTIONS (2)
  - Vaginal odour [Recovered/Resolved]
  - Vulvovaginal dryness [Recovered/Resolved]
